FAERS Safety Report 9148792 (Version 1)
Quarter: 2013Q1

REPORT INFORMATION
  Report Type: Spontaneous
  Country: US (occurrence: None)
  Receive Date: 20130227
  Receipt Date: 20130227
  Transmission Date: 20140127
  Serious: Yes (Life-Threatening)
  Sender: FDA-Public Use
  Company Number: None

PATIENT
  Age: 43 Year
  Sex: Female
  Weight: 72.58 kg

DRUGS (1)
  1. NUVARING [Suspect]
     Dosage: 1 ONCE PER MONTH VAG
     Route: 067
     Dates: start: 20050501, end: 20130220

REACTIONS (3)
  - Myositis [None]
  - Deep vein thrombosis [None]
  - Thrombosis [None]
